FAERS Safety Report 17114909 (Version 1)
Quarter: 2019Q4

REPORT INFORMATION
  Report Type: Spontaneous
  Country: US (occurrence: US)
  Receive Date: 20191205
  Receipt Date: 20191205
  Transmission Date: 20200122
  Serious: No
  Sender: FDA-Public Use
  Company Number: US-GW PHARMA-201910USGW3748

PATIENT

DRUGS (12)
  1. EPIDIOLEX [Suspect]
     Active Substance: CANNABIDIOL
     Indication: PRODUCT USED FOR UNKNOWN INDICATION
     Dosage: 5 MG/KG/DAY
     Route: 048
     Dates: start: 20190409, end: 2019
  2. EPIDIOLEX [Interacting]
     Active Substance: CANNABIDIOL
     Dosage: 8 MG/KG/DAY
     Route: 048
     Dates: start: 20190604
  3. CLONIDINE. [Concomitant]
     Active Substance: CLONIDINE
     Indication: PRODUCT USED FOR UNKNOWN INDICATION
     Dosage: UNK
     Route: 065
  4. VALPROIC ACID. [Concomitant]
     Active Substance: VALPROIC ACID
     Dosage: 250 MILLIGRAM, QD
     Route: 065
  5. RAPAMYCIN [Interacting]
     Active Substance: SIROLIMUS
     Dosage: 6 MILLIGRAM (MTOR INHIBITOR)
     Route: 065
  6. VALPROIC ACID. [Concomitant]
     Active Substance: VALPROIC ACID
     Indication: PRODUCT USED FOR UNKNOWN INDICATION
     Dosage: 750 MILLIGRAM, BID
     Route: 065
  7. EPIDIOLEX [Interacting]
     Active Substance: CANNABIDIOL
     Dosage: 8 MG/KG/DAY
     Route: 048
     Dates: start: 20190507, end: 2019
  8. RAPAMYCIN [Interacting]
     Active Substance: SIROLIMUS
     Dosage: 3 MILLIGRAM (MTOR INHIBITOR)
     Route: 065
  9. RAPAMYCIN [Interacting]
     Active Substance: SIROLIMUS
     Indication: PRODUCT USED FOR UNKNOWN INDICATION
     Dosage: 8 MILLIGRAM (MAINTANENCE DOSE FOR MORE THAN 10 YEARS) (MTOR INHIBITOR)
     Route: 065
  10. VIMPAT [Concomitant]
     Active Substance: LACOSAMIDE
     Indication: PRODUCT USED FOR UNKNOWN INDICATION
     Dosage: UNK
     Route: 065
  11. VALPROIC ACID. [Concomitant]
     Active Substance: VALPROIC ACID
     Dosage: UNK
  12. INSULIN [Concomitant]
     Active Substance: INSULIN NOS
     Indication: PRODUCT USED FOR UNKNOWN INDICATION
     Dosage: UNK
     Route: 065

REACTIONS (1)
  - Drug interaction [Unknown]

NARRATIVE: CASE EVENT DATE: 2019
